FAERS Safety Report 5246508-0 (Version None)
Quarter: 2007Q1

REPORT INFORMATION
  Report Type: 
  Country: None (occurrence: None)
  Receive Date: 20070222
  Receipt Date: 20070222
  Transmission Date: 20070707
  Serious: Yes (Hospitalization)
  Sender: FDA-Public Use
  Company Number: None

PATIENT
  Sex: Male
  Weight: 94.3 kg

DRUGS (5)
  1. CYCLOPHOSPHAMIDE [Suspect]
     Dosage: 2484 MG
  2. DOXORUBICIN HYDROCHLORIDE [Suspect]
     Dosage: 104 MG
  3. G-CSF (FILGRASTIM, AMGEN) [Suspect]
     Dosage: 2300 MG
  4. PREDNISONE [Suspect]
     Dosage: 400 MG
  5. VINCRISTINE SULFATE [Suspect]
     Dosage: 5.6 MG

REACTIONS (24)
  - ATELECTASIS [None]
  - BLOOD CREATININE INCREASED [None]
  - BLOOD PH DECREASED [None]
  - CELLULITIS [None]
  - ERYTHEMA [None]
  - FEBRILE NEUTROPENIA [None]
  - FLUSHING [None]
  - HAEMODYNAMIC INSTABILITY [None]
  - HYPOTENSION [None]
  - IMPAIRED HEALING [None]
  - INADEQUATE ANALGESIA [None]
  - LACTIC ACIDOSIS [None]
  - MULTI-ORGAN DISORDER [None]
  - MUSCLE DISORDER [None]
  - MUSCLE NECROSIS [None]
  - NO THERAPEUTIC RESPONSE [None]
  - OXYGEN SATURATION DECREASED [None]
  - PERIPHERAL COLDNESS [None]
  - SHOCK [None]
  - TACHYCARDIA [None]
  - TENDERNESS [None]
  - TESTICULAR PAIN [None]
  - URINE OUTPUT DECREASED [None]
  - VASOCONSTRICTION [None]
